FAERS Safety Report 14914087 (Version 2)
Quarter: 2018Q2

REPORT INFORMATION
  Report Type: Spontaneous
  Country: US (occurrence: US)
  Receive Date: 20180518
  Receipt Date: 20180613
  Transmission Date: 20180711
  Serious: Yes (Other)
  Sender: FDA-Public Use
  Company Number: US-PFIZER INC-2018199563

PATIENT
  Sex: Female

DRUGS (4)
  1. NEXIUM [Suspect]
     Active Substance: ESOMEPRAZOLE MAGNESIUM
     Indication: DYSPEPSIA
     Dosage: UNK, [AS REQUIRED]
  2. TRICOR [Suspect]
     Active Substance: FENOFIBRATE
     Dosage: 48 MG, DAILY
     Route: 048
  3. DUAVEE [Suspect]
     Active Substance: BAZEDOXIFENE ACETATE\ESTROGENS, CONJUGATED
     Indication: HOT FLUSH
     Dosage: UNK UNK, 1X/DAY  (1 IN 1 D) [BAZEDOXIFENE ACETATE: 20 MG / CONJUGATED ESTROGENS: 0.45 MG]
  4. CRESTOR [Suspect]
     Active Substance: ROSUVASTATIN CALCIUM
     Dosage: 10 MG, 1X/DAY (1 IN 1 D)

REACTIONS (8)
  - Vision blurred [Unknown]
  - Weight increased [Unknown]
  - Memory impairment [Unknown]
  - Blindness unilateral [Not Recovered/Not Resolved]
  - Cataract [Unknown]
  - Drug ineffective [Unknown]
  - Blood glucose increased [Unknown]
  - Muscular weakness [Unknown]
